FAERS Safety Report 18186285 (Version 1)
Quarter: 2020Q3

REPORT INFORMATION
  Report Type: Spontaneous
  Country: US (occurrence: US)
  Receive Date: 20200822
  Receipt Date: 20200822
  Transmission Date: 20201103
  Serious: Yes (Disabling)
  Sender: FDA-Public Use
  Company Number: None

PATIENT
  Age: 44 Year
  Sex: Female
  Weight: 51.75 kg

DRUGS (22)
  1. AJOVY [Suspect]
     Active Substance: FREMANEZUMAB-VFRM
     Indication: MIGRAINE
     Dosage: ?          QUANTITY:1 INJECTION(S);OTHER FREQUENCY:MONTHLY;?
     Route: 030
     Dates: start: 20200821, end: 20200822
  2. EMGALITY [Suspect]
     Active Substance: GALCANEZUMAB-GNLM
  3. HYDROXYZINE [Concomitant]
     Active Substance: HYDROXYZINE HYDROCHLORIDE
  4. ST JOHN^S WORT [Concomitant]
     Active Substance: ST. JOHN^S WORT
  5. CLONAZEPAM. [Concomitant]
     Active Substance: CLONAZEPAM
  6. DICYCLOMINE [Concomitant]
     Active Substance: DICYCLOMINE HYDROCHLORIDE
  7. SUMATRIPTAN. [Concomitant]
     Active Substance: SUMATRIPTAN
  8. PROMETHAZINE [Concomitant]
     Active Substance: PROMETHAZINE HYDROCHLORIDE
  9. AJOVY [Concomitant]
     Active Substance: FREMANEZUMAB-VFRM
  10. VITAMIN C [Concomitant]
     Active Substance: ASCORBIC ACID
  11. MIRALAX [Concomitant]
     Active Substance: POLYETHYLENE GLYCOL 3350
  12. GAS PREVENTION [Concomitant]
  13. PRENATAL VITAMINS [Concomitant]
     Active Substance: VITAMINS
  14. OMEGA 3?6?9 [Concomitant]
     Active Substance: FISH OIL
  15. NEVATON FORTE [Concomitant]
  16. MISOPROSTOL. [Concomitant]
     Active Substance: MISOPROSTOL
  17. HYDROMORPHONE [Concomitant]
     Active Substance: HYDROMORPHONE
  18. SCOPOLAMINE [Concomitant]
     Active Substance: SCOPOLAMINE
  19. AIMOVIG [Suspect]
     Active Substance: ERENUMAB-AOOE
  20. BLISOVI 24 FE [Concomitant]
     Active Substance: ETHINYL ESTRADIOL\NORETHINDRONE ACETATE
  21. BENADRYL [Concomitant]
     Active Substance: DIPHENHYDRAMINE HYDROCHLORIDE
  22. VIT B2 [Concomitant]

REACTIONS (3)
  - Injection site reaction [None]
  - Headache [None]
  - Hypersensitivity [None]

NARRATIVE: CASE EVENT DATE: 20200821
